FAERS Safety Report 8624555-6 (Version None)
Quarter: 2012Q3

REPORT INFORMATION
  Report Type: 
  Country: None (occurrence: None)
  Receive Date: 20120827
  Receipt Date: 20120821
  Transmission Date: 20120928
  Serious: Yes (Life-Threatening, Hospitalization, Other)
  Sender: FDA-Public Use
  Company Number: US-ALEXION-A201201513

PATIENT
  Sex: Male

DRUGS (2)
  1. SOLIRIS [Suspect]
     Indication: PAROXYSMAL NOCTURNAL HAEMOGLOBINURIA
     Dosage: 600 MG, QW X 4
     Route: 042
     Dates: start: 20110802
  2. SOLIRIS [Suspect]
     Dosage: 900 MG, Q2W
     Route: 042
     Dates: start: 20110901

REACTIONS (5)
  - MYOCARDIAL INFARCTION [None]
  - HAEMOLYSIS [None]
  - LEUKOPENIA [None]
  - TROPONIN INCREASED [None]
  - ATRIAL FLUTTER [None]
